FAERS Safety Report 5112715-0 (Version None)
Quarter: 2006Q3

REPORT INFORMATION
  Report Type: 
  Country: None (occurrence: None)
  Receive Date: 20060922
  Receipt Date: 20060912
  Transmission Date: 20061208
  Serious: Yes (Hospitalization)
  Sender: FDA-Public Use
  Company Number: FR-GLAXOSMITHKLINE-B0437694A

PATIENT
  Age: 3 Day
  Sex: Female
  Weight: 3 kg

DRUGS (3)
  1. DEROXAT [Suspect]
     Dosage: 30MG PER DAY
  2. TERCIAN [Suspect]
     Dosage: 25MG PER DAY
  3. PRAZEPAM [Suspect]
     Dosage: 80MG PER DAY

REACTIONS (12)
  - BRONCHIAL OBSTRUCTION [None]
  - DRUG EXPOSURE DURING PREGNANCY [None]
  - DYSKINESIA [None]
  - DYSPHAGIA [None]
  - ELECTROENCEPHALOGRAM ABNORMAL [None]
  - EXTRAPYRAMIDAL DISORDER [None]
  - FEEDING DISORDER NEONATAL [None]
  - HYPOTONIA [None]
  - MUSCLE SPASTICITY [None]
  - MYOCLONUS [None]
  - NASOPHARYNGEAL DISORDER [None]
  - TREMOR [None]
